FAERS Safety Report 24936534 (Version 1)
Quarter: 2025Q1

REPORT INFORMATION
  Report Type: Spontaneous
  Country: CN (occurrence: CN)
  Receive Date: 20250206
  Receipt Date: 20250206
  Transmission Date: 20250409
  Serious: Yes (Death, Hospitalization, Other)
  Sender: RANBAXY
  Company Number: CN-SUN PHARMACEUTICAL INDUSTRIES LTD-2025R1-492174

PATIENT
  Age: 48 Year
  Sex: Female

DRUGS (2)
  1. ALBUTEROL [Suspect]
     Active Substance: ALBUTEROL
     Indication: Rehabilitation therapy
     Route: 065
  2. DOXOFYLLINE [Suspect]
     Active Substance: DOXOFYLLINE
     Indication: Rehabilitation therapy
     Route: 065

REACTIONS (4)
  - Pneumonia [Fatal]
  - Therapeutic response decreased [Unknown]
  - Chest discomfort [Unknown]
  - Dyspnoea [Unknown]
